FAERS Safety Report 8229358-2 (Version None)
Quarter: 2012Q1

REPORT INFORMATION
  Report Type: 
  Country: None (occurrence: None)
  Receive Date: 20120322
  Receipt Date: 20120322
  Transmission Date: 20120608
  Serious: Yes (Hospitalization)
  Sender: FDA-Public Use
  Company Number: IE-ABBOTT-12P-229-0911563-00

PATIENT
  Sex: Male

DRUGS (3)
  1. AMOXICILLIN AND CLAVULANATE POTASSIUM [Suspect]
     Indication: PNEUMONIA
     Dates: start: 20120226, end: 20120228
  2. AMOXICILLIN [Suspect]
     Indication: PNEUMONIA
     Dates: start: 20120229
  3. CLARITHROMYCIN [Suspect]
     Indication: PNEUMONIA
     Dates: start: 20120226, end: 20120228

REACTIONS (1)
  - LIVER FUNCTION TEST ABNORMAL [None]
